FAERS Safety Report 7577941-X (Version None)
Quarter: 2011Q2

REPORT INFORMATION
  Report Type: 
  Country: None (occurrence: None)
  Receive Date: 20110628
  Receipt Date: 20110623
  Transmission Date: 20111010
  Serious: Yes (Death)
  Sender: FDA-Public Use
  Company Number: PHHY2011CZ51618

PATIENT
  Sex: Female

DRUGS (4)
  1. ZOMETA [Suspect]
     Indication: METASTASES TO BONE
     Dates: start: 20060601
  2. ANODYNE [Concomitant]
     Route: 048
  3. NSAID'S [Concomitant]
  4. FENTANYL [Concomitant]
     Route: 062

REACTIONS (3)
  - NEOPLASM PROGRESSION [None]
  - BONE DISORDER [None]
  - NEOPLASM MALIGNANT [None]
